FAERS Safety Report 15673468 (Version 1)
Quarter: 2018Q4

REPORT INFORMATION
  Report Type: Spontaneous
  Country: US (occurrence: US)
  Receive Date: 20181129
  Receipt Date: 20181129
  Transmission Date: 20190205
  Serious: No
  Sender: FDA-Public Use
  Company Number: US-AMAG PHARMACEUTICALS, INC.-AMAG201806275

PATIENT
  Age: 65 Year
  Sex: Female
  Weight: 113.38 kg

DRUGS (3)
  1. INTRAROSA [Suspect]
     Active Substance: PRASTERONE
     Indication: VAGINAL DISORDER
     Dosage: 6.5 MG, QHS
     Route: 067
     Dates: start: 20180925
  2. ANTIBIOTICS [Concomitant]
     Active Substance: UNSPECIFIED INGREDIENT
     Indication: PRODUCT USED FOR UNKNOWN INDICATION
     Dosage: UNK
     Route: 065
  3. INTRAROSA [Suspect]
     Active Substance: PRASTERONE
     Dosage: 6.5 MG, QHS
     Route: 067
     Dates: start: 201810

REACTIONS (3)
  - Vulvovaginal pain [Not Recovered/Not Resolved]
  - Off label use [Unknown]
  - Vulvovaginal pruritus [Not Recovered/Not Resolved]

NARRATIVE: CASE EVENT DATE: 20180925
